FAERS Safety Report 13272557 (Version 1)
Quarter: 2017Q1

REPORT INFORMATION
  Report Type: Spontaneous
  Country: BR (occurrence: BR)
  Receive Date: 20170227
  Receipt Date: 20170227
  Transmission Date: 20170428
  Serious: Yes (Other)
  Sender: FDA-Public Use
  Company Number: BR-ROCHE-1898926

PATIENT
  Sex: Female

DRUGS (1)
  1. RIVOTRIL [Suspect]
     Active Substance: CLONAZEPAM
     Indication: INSOMNIA
     Dosage: 2 TO 3 DROPS BEFORE SLEEPING (0.25 % 20 ML )
     Route: 065

REACTIONS (5)
  - Blood pressure increased [Unknown]
  - Muscular weakness [Unknown]
  - Off label use [Unknown]
  - Somnolence [Unknown]
  - Eye disorder [Unknown]
